FAERS Safety Report 26155194 (Version 1)
Quarter: 2025Q4

REPORT INFORMATION
  Report Type: Spontaneous
  Country: CN (occurrence: CN)
  Receive Date: 20251215
  Receipt Date: 20251215
  Transmission Date: 20260119
  Serious: Yes (Hospitalization, Other)
  Sender: AMNEAL
  Company Number: CN-AMNEAL PHARMACEUTICALS-2025-AMRX-04709

PATIENT
  Age: 26 Year
  Sex: Male

DRUGS (5)
  1. QUETIAPINE FUMARATE [Suspect]
     Active Substance: QUETIAPINE FUMARATE
     Indication: Product used for unknown indication
     Dosage: 5 MG 1 TABLETS, DAILY
     Route: 048
  2. QUETIAPINE FUMARATE [Suspect]
     Active Substance: QUETIAPINE FUMARATE
     Dosage: APPROXIMATELY 100 TABLETS
     Route: 048
     Dates: start: 20230329
  3. VORTIOXETINE HYDROBROMIDE [Concomitant]
     Active Substance: VORTIOXETINE HYDROBROMIDE
     Indication: Product used for unknown indication
     Dosage: 10 MG 1 TABLETS, DAILY
     Route: 065
  4. VENLAFAXINE HCL [Concomitant]
     Active Substance: VENLAFAXINE HYDROCHLORIDE
     Indication: Product used for unknown indication
     Dosage: 75 MG, 2 TABLETS, DAILY
     Route: 065
  5. ESTAZOLAM [Concomitant]
     Active Substance: ESTAZOLAM
     Indication: Product used for unknown indication
     Dosage: 1MG 1 TABLETS BEFORE BEDTIME
     Route: 065

REACTIONS (6)
  - Acute kidney injury [Recovered/Resolved]
  - Neuropathy peripheral [Recovered/Resolved]
  - Long QT syndrome [Recovered/Resolved]
  - Rhabdomyolysis [Recovered/Resolved]
  - Coma [Recovered/Resolved]
  - Intentional overdose [Unknown]

NARRATIVE: CASE EVENT DATE: 20230329
